FAERS Safety Report 7920441-5 (Version None)
Quarter: 2011Q4

REPORT INFORMATION
  Report Type: 
  Country: None (occurrence: None)
  Receive Date: 20111117
  Receipt Date: 20111104
  Transmission Date: 20120403
  Serious: Yes (Hospitalization)
  Sender: FDA-Public Use
  Company Number: PHHY2011FR097675

PATIENT
  Sex: Female
  Weight: 56 kg

DRUGS (16)
  1. NEORAL [Suspect]
     Indication: MUSCULAR WEAKNESS
     Dosage: 90 MG, BID
  2. TOCILIZUMAB [Suspect]
     Dates: start: 20110201
  3. METHOTREXATE SODIUM [Suspect]
     Indication: MUSCULAR WEAKNESS
     Dosage: 15 MG, WEEKLY
     Dates: start: 20080501
  4. TOCILIZUMAB [Suspect]
     Dates: start: 20110301
  5. CALCIUM CARBONATE [Concomitant]
     Dosage: 1 DF, QD
  6. SPECIAFOLDINE [Concomitant]
     Dosage: 3 DF, WEEKLY
  7. TOCILIZUMAB [Suspect]
     Indication: RHEUMATOID ARTHRITIS
     Dosage: 8 MG/KG EVERY 4 WEEKS
     Dates: start: 20100501
  8. PREDNISONE [Concomitant]
     Dosage: 2 MG, QD
  9. ACTONEL [Concomitant]
     Dosage: 35 MG, WEEKLY
  10. MESTINON [Concomitant]
     Dosage: 3 DF, DAILY
  11. OMEPRAZOLE [Concomitant]
     Dosage: 20 MG, QD
  12. COVERAM (PERINDOPRIL ARGININE/AMLODIPINE) [Concomitant]
     Dosage: 10/5 MG QD
  13. TOCILIZUMAB [Suspect]
     Dosage: UNK
     Dates: start: 20110401
  14. TOCILIZUMAB [Suspect]
     Dates: start: 20110707
  15. ATORVASTATIN CALCIUM [Concomitant]
     Dosage: 40 MG,DAILY
  16. TOCILIZUMAB [Suspect]
     Dates: start: 20110601

REACTIONS (5)
  - OSTEITIS [None]
  - CANDIDIASIS [None]
  - HYPERKERATOSIS [None]
  - WOUND SECRETION [None]
  - LUNG DISORDER [None]
